FAERS Safety Report 8313205-4 (Version None)
Quarter: 2012Q2

REPORT INFORMATION
  Report Type: 
  Country: None (occurrence: None)
  Receive Date: 20120424
  Receipt Date: 20120411
  Transmission Date: 20120825
  Serious: Yes (Death, Hospitalization, Other)
  Sender: FDA-Public Use
  Company Number: 217230

PATIENT

DRUGS (3)
  1. WARFARIN SODIUM [Concomitant]
  2. INNOHEP [Suspect]
     Indication: ANTICOAGULANT THERAPY
     Dosage: (175 IU/KG)
  3. ASPIRIN [Concomitant]

REACTIONS (3)
  - PULMONARY OEDEMA [None]
  - PNEUMONIA [None]
  - ACUTE MYOCARDIAL INFARCTION [None]
